FAERS Safety Report 4695682-3 (Version None)
Quarter: 2005Q2

REPORT INFORMATION
  Report Type: 
  Country: None (occurrence: None)
  Receive Date: 20050621
  Receipt Date: 20050614
  Transmission Date: 20051028
  Serious: Yes (Hospitalization)
  Sender: FDA-Public Use
  Company Number: PHEH2005US06766

PATIENT
  Sex: Male

DRUGS (1)
  1. EXELON [Suspect]
     Dosage: 1 CAPSULE DAILY
     Route: 048

REACTIONS (3)
  - COMA [None]
  - MEDICATION ERROR [None]
  - PYREXIA [None]
